FAERS Safety Report 20055029 (Version 1)
Quarter: 2021Q4

REPORT INFORMATION
  Report Type: Spontaneous
  Country: None (occurrence: A1)
  Receive Date: 20211110
  Receipt Date: 20211110
  Transmission Date: 20220303
  Serious: Yes (Hospitalization, Other)
  Sender: FDA-Public Use
  Company Number: A1-Avion Pharmaceuticals, LLC-2121710

PATIENT
  Age: 50 Year
  Sex: Male

DRUGS (1)
  1. GLOPERBA [Suspect]
     Active Substance: COLCHICINE
     Indication: Gout
     Route: 065

REACTIONS (10)
  - Asthenia [Recovered/Resolved]
  - Myalgia [Unknown]
  - Fall [Unknown]
  - Pyrexia [Unknown]
  - Cough [Unknown]
  - Lung infiltration [Unknown]
  - Rhabdomyolysis [Unknown]
  - Myositis [Unknown]
  - Myopathy [Unknown]
  - Pneumonia legionella [Unknown]
